FAERS Safety Report 6584383-2 (Version None)
Quarter: 2010Q1

REPORT INFORMATION
  Report Type: 
  Country: None (occurrence: None)
  Receive Date: 20100216
  Receipt Date: 20100129
  Transmission Date: 20100710
  Serious: No
  Sender: FDA-Public Use
  Company Number: US-ABBOTT-10P-163-0623104-00

PATIENT
  Sex: Male
  Weight: 122.58 kg

DRUGS (4)
  1. SIMCOR [Suspect]
     Indication: BLOOD CHOLESTEROL INCREASED
     Dosage: 500MG/20MG  AT BEDTIME
     Dates: start: 20100101, end: 20100101
  2. ASPIRIN [Concomitant]
     Indication: DRUG USE FOR UNKNOWN INDICATION
  3. BLOOD PRESSURE MEDICATION [Concomitant]
     Indication: BLOOD PRESSURE
  4. HEART MEDICATION [Concomitant]
     Indication: CARDIAC DISORDER

REACTIONS (2)
  - FLUSHING [None]
  - PRURITUS [None]
